FAERS Safety Report 6528017-1 (Version None)
Quarter: 2009Q4

REPORT INFORMATION
  Report Type: 
  Country: None (occurrence: None)
  Receive Date: 20091222
  Receipt Date: 20090921
  Transmission Date: 20100525
  Serious: No
  Sender: FDA-Public Use
  Company Number: ALL1-2009-02804

PATIENT
  Age: 58 Year
  Sex: Male
  Weight: 83.4 kg

DRUGS (12)
  1. VYVANSE [Suspect]
     Indication: ATTENTION DEFICIT/HYPERACTIVITY DISORDER
     Dosage: 20 MG, 1X/DAY:QD, ORAL ;30 MG, 1X/DAY:QD, ORAL ; 40 MG, 1X/DAY:QD, ORAL ; 90 MG, 1X/DAY:QD, ORAL
     Route: 048
     Dates: start: 20080801, end: 20090101
  2. VYVANSE [Suspect]
     Indication: BIPOLAR DISORDER
     Dosage: 20 MG, 1X/DAY:QD, ORAL ;30 MG, 1X/DAY:QD, ORAL ; 40 MG, 1X/DAY:QD, ORAL ; 90 MG, 1X/DAY:QD, ORAL
     Route: 048
     Dates: start: 20080801, end: 20090101
  3. VYVANSE [Suspect]
     Indication: ATTENTION DEFICIT/HYPERACTIVITY DISORDER
     Dosage: 20 MG, 1X/DAY:QD, ORAL ;30 MG, 1X/DAY:QD, ORAL ; 40 MG, 1X/DAY:QD, ORAL ; 90 MG, 1X/DAY:QD, ORAL
     Route: 048
     Dates: start: 20090101, end: 20090101
  4. VYVANSE [Suspect]
     Indication: BIPOLAR DISORDER
     Dosage: 20 MG, 1X/DAY:QD, ORAL ;30 MG, 1X/DAY:QD, ORAL ; 40 MG, 1X/DAY:QD, ORAL ; 90 MG, 1X/DAY:QD, ORAL
     Route: 048
     Dates: start: 20090101, end: 20090101
  5. VYVANSE [Suspect]
     Indication: ATTENTION DEFICIT/HYPERACTIVITY DISORDER
     Dosage: 20 MG, 1X/DAY:QD, ORAL ;30 MG, 1X/DAY:QD, ORAL ; 40 MG, 1X/DAY:QD, ORAL ; 90 MG, 1X/DAY:QD, ORAL
     Route: 048
     Dates: start: 20090101
  6. VYVANSE [Suspect]
     Indication: BIPOLAR DISORDER
     Dosage: 20 MG, 1X/DAY:QD, ORAL ;30 MG, 1X/DAY:QD, ORAL ; 40 MG, 1X/DAY:QD, ORAL ; 90 MG, 1X/DAY:QD, ORAL
     Route: 048
     Dates: start: 20090101
  7. VYVANSE [Suspect]
     Indication: ATTENTION DEFICIT/HYPERACTIVITY DISORDER
     Dosage: 20 MG, 1X/DAY:QD, ORAL ;30 MG, 1X/DAY:QD, ORAL ; 40 MG, 1X/DAY:QD, ORAL ; 90 MG, 1X/DAY:QD, ORAL
     Route: 048
     Dates: start: 20090101
  8. VYVANSE [Suspect]
     Indication: BIPOLAR DISORDER
     Dosage: 20 MG, 1X/DAY:QD, ORAL ;30 MG, 1X/DAY:QD, ORAL ; 40 MG, 1X/DAY:QD, ORAL ; 90 MG, 1X/DAY:QD, ORAL
     Route: 048
     Dates: start: 20090101
  9. ATIVAN [Concomitant]
  10. KLONOPIN [Concomitant]
  11. LUVOX [Concomitant]
  12. LAMICTAL [Concomitant]

REACTIONS (7)
  - BOWEL MOVEMENT IRREGULARITY [None]
  - DECREASED APPETITE [None]
  - DRUG INEFFECTIVE [None]
  - EYE IRRITATION [None]
  - INTENTIONAL OVERDOSE [None]
  - ONYCHOPHAGIA [None]
  - VISION BLURRED [None]
